FAERS Safety Report 18890090 (Version 1)
Quarter: 2021Q1

REPORT INFORMATION
  Report Type: Spontaneous
  Country: US (occurrence: US)
  Receive Date: 20210214
  Receipt Date: 20210214
  Transmission Date: 20210420
  Serious: No
  Sender: FDA-Public Use
  Company Number: US-JNJFOC-20210149091

PATIENT
  Age: 50 Year
  Sex: Male
  Weight: 101.24 kg

DRUGS (1)
  1. MENS ROGAINE EXTRA STRENGTH [Suspect]
     Active Substance: MINOXIDIL
     Indication: ALOPECIA
     Dosage: FREQUENCY: ONCE SOMETIMES TWICE?PRODUCT LAST ADMINISTERED ON 28?JAN?2021
     Route: 061
     Dates: start: 20201101

REACTIONS (2)
  - Application site pruritus [Not Recovered/Not Resolved]
  - Inappropriate schedule of product administration [Unknown]

NARRATIVE: CASE EVENT DATE: 20201101
